FAERS Safety Report 7340467-2 (Version None)
Quarter: 2011Q1

REPORT INFORMATION
  Report Type: 
  Country: None (occurrence: None)
  Receive Date: 20110309
  Receipt Date: 20110228
  Transmission Date: 20110831
  Serious: Yes (Death)
  Sender: FDA-Public Use
  Company Number: ES-SANOFI-AVENTIS-2011SA013956

PATIENT

DRUGS (6)
  1. MELPHALAN [Suspect]
     Indication: BONE MARROW CONDITIONING REGIMEN
     Dosage: DOSE OF 80 MG/M2 FOR GELTAMO-99-0151 PARTICIPANTS OR 140 MG/M2 FOR MINIALO-99-00/270 PARTICIPANTS.
     Route: 065
  2. FLUDARABINE PHOSPHATE [Suspect]
     Indication: BONE MARROW CONDITIONING REGIMEN
     Dosage: DOSE BETWEEN 125 MG/M2 AND 150 MG/M2
     Route: 065
  3. CYCLOSPORINE [Concomitant]
  4. ALL OTHER THERAPEUTIC PRODUCTS [Concomitant]
  5. FLUDARABINE PHOSPHATE [Suspect]
     Dosage: DOSE BETWEEN 125 MG/M2 AND 150 MG/M2
     Route: 065
  6. METHOTREXATE [Concomitant]

REACTIONS (1)
  - VENOOCCLUSIVE LIVER DISEASE [None]
